FAERS Safety Report 6732233-3 (Version None)
Quarter: 2010Q2

REPORT INFORMATION
  Report Type: 
  Country: None (occurrence: None)
  Receive Date: 20100519
  Receipt Date: 20100510
  Transmission Date: 20101027
  Serious: Yes (Death, Hospitalization)
  Sender: FDA-Public Use
  Company Number: A0858687A

PATIENT
  Age: 78 Year
  Sex: Male
  Weight: 100.5 kg

DRUGS (17)
  1. AVANDIA [Suspect]
     Dosage: 8MG PER DAY
     Route: 048
     Dates: end: 20070201
  2. QUININE SULFATE [Concomitant]
  3. ASPIRIN [Concomitant]
  4. FELODIPINE [Concomitant]
  5. ALBUTEROL [Concomitant]
  6. CLONIDINE [Concomitant]
  7. ALLOPURINOL [Concomitant]
  8. FUROSEMIDE [Concomitant]
  9. ISOSORBIDE DINITRATE [Concomitant]
  10. SIMVASTATIN [Concomitant]
  11. TERAZOSIN HCL [Concomitant]
  12. LANTUS [Concomitant]
  13. DIATX [Concomitant]
  14. RENAGEL [Concomitant]
  15. HECTOROL [Concomitant]
  16. ASMANEX TWISTHALER [Concomitant]
  17. EPOGEN [Concomitant]

REACTIONS (3)
  - DEATH [None]
  - MYOCARDIAL INFARCTION [None]
  - MYOCARDIAL ISCHAEMIA [None]
